FAERS Safety Report 9084325 (Version 1)
Quarter: 2013Q1

REPORT INFORMATION
  Report Type: Report from Study
  Country: US (occurrence: US)
  Receive Date: 20130130
  Receipt Date: 20130130
  Transmission Date: 20140127
  Serious: Yes (Other)
  Sender: FDA-Public Use
  Company Number: US-ABBOTT-12P-163-0970214-00

PATIENT
  Sex: Male

DRUGS (1)
  1. HUMIRA 40 MG/ 0.8 ML PRE-FILLED SYRINGE [Suspect]
     Indication: CROHN^S DISEASE
     Route: 058
     Dates: start: 20120405

REACTIONS (6)
  - Chest pain [Unknown]
  - Dyspnoea [Unknown]
  - Tinnitus [Unknown]
  - Fungal infection [Unknown]
  - Blood pressure increased [Unknown]
  - Electrocardiogram abnormal [Unknown]
